FAERS Safety Report 9350077 (Version 1)
Quarter: 2013Q2

REPORT INFORMATION
  Report Type: Spontaneous
  Country: ES (occurrence: ES)
  Receive Date: 20130616
  Receipt Date: 20130616
  Transmission Date: 20140414
  Serious: Yes (Hospitalization)
  Sender: FDA-Public Use
  Company Number: ES-US-EMD SERONO, INC.-E2B_7213363

PATIENT
  Age: 36 Year
  Sex: Female

DRUGS (5)
  1. OVITRELLE [Suspect]
     Indication: PRODUCT USED FOR UNKNOWN INDICATION
     Dosage: 1AMP
     Route: 058
     Dates: start: 20120924, end: 20120924
  2. DECAPEPTYL [Suspect]
     Indication: OVULATION INDUCTION
     Dosage: 1/2 AMP
     Route: 058
     Dates: start: 20120916, end: 20120923
  3. PUREGON [Suspect]
     Indication: PRODUCT USED FOR UNKNOWN INDICATION
     Dosage: 10 VIALS OF 0.5 ML
     Route: 058
     Dates: start: 20120924, end: 20120925
  4. DECAPEPTYL [Concomitant]
     Indication: OVULATION INDUCTION
     Dosage: 1 AMP
     Route: 058
     Dates: start: 20120909, end: 20120915
  5. CLOMIPHENE                         /00061301/ [Concomitant]
     Indication: OVULATION INDUCTION
     Dosage: 50MG
     Route: 048
     Dates: end: 201208

REACTIONS (1)
  - Ovarian hyperstimulation syndrome [Recovered/Resolved]
